FAERS Safety Report 7018190-3 (Version None)
Quarter: 2010Q3

REPORT INFORMATION
  Report Type: 
  Country: None (occurrence: None)
  Receive Date: 20100928
  Receipt Date: 20100917
  Transmission Date: 20110219
  Serious: Yes (Other)
  Sender: FDA-Public Use
  Company Number: US-ASTRAZENECA-2010SE43840

PATIENT
  Sex: Male

DRUGS (4)
  1. PRILOSEC [Suspect]
     Route: 048
  2. LIPITOR [Interacting]
     Route: 048
  3. LIPITOR [Interacting]
     Route: 048
  4. FLOMAX [Interacting]

REACTIONS (3)
  - BACK PAIN [None]
  - DRUG INTERACTION [None]
  - TONGUE CARCINOMA STAGE IV [None]
